FAERS Safety Report 7246284-6 (Version None)
Quarter: 2011Q1

REPORT INFORMATION
  Report Type: 
  Country: None (occurrence: None)
  Receive Date: 20110126
  Receipt Date: 20110120
  Transmission Date: 20110831
  Serious: Yes (Other)
  Sender: FDA-Public Use
  Company Number: US-JNJFOC-20110106091

PATIENT
  Age: 12 Year
  Sex: Female
  Weight: 56.7 kg

DRUGS (2)
  1. EXTRA STRENGTH TYLENOL [Suspect]
     Route: 048
  2. EXTRA STRENGTH TYLENOL [Suspect]
     Indication: PYREXIA
     Dosage: 1000MG EVERY 4 HOURS, 3 TIMES TOTAL IN ONE DAY
     Route: 048

REACTIONS (4)
  - FEELING ABNORMAL [None]
  - HALLUCINATION [None]
  - DELIRIUM [None]
  - NIGHTMARE [None]
